FAERS Safety Report 10279980 (Version 1)
Quarter: 2014Q3

REPORT INFORMATION
  Report Type: Spontaneous
  Country: FR (occurrence: None)
  Receive Date: 20140701
  Receipt Date: 20140701
  Transmission Date: 20150326
  Serious: Yes (Hospitalization, Other)
  Sender: FDA-Public Use
  Company Number: FR-ZYDUS-003898

PATIENT
  Age: 72 Year
  Sex: Male

DRUGS (2)
  1. DABIGATRAN ETEXILATE [Suspect]
     Active Substance: DABIGATRAN ETEXILATE
     Indication: ATRIAL FIBRILLATION
  2. AMIODARONE (AMIODARONE) [Suspect]
     Active Substance: AMIODARONE
     Indication: ATRIAL FIBRILLATION

REACTIONS (6)
  - Haemoglobin decreased [None]
  - Drug interaction [None]
  - Prothrombin time ratio decreased [None]
  - Epistaxis [None]
  - Respiratory distress [None]
  - Activated partial thromboplastin time prolonged [None]
